FAERS Safety Report 7777461-3 (Version None)
Quarter: 2011Q3

REPORT INFORMATION
  Report Type: 
  Country: None (occurrence: None)
  Receive Date: 20110926
  Receipt Date: 20110921
  Transmission Date: 20111222
  Serious: Yes (Hospitalization, Other)
  Sender: FDA-Public Use
  Company Number: US-PFIZER INC-2010061586

PATIENT
  Sex: Female

DRUGS (7)
  1. CHANTIX [Suspect]
     Dosage: 1 MG, 2X/DAY
     Route: 048
     Dates: end: 20070427
  2. WELLBUTRIN [Concomitant]
     Indication: DEPRESSION
     Dosage: 150 MG, 300 MG
     Dates: start: 19950101
  3. CLARITIN [Concomitant]
     Indication: HYPERSENSITIVITY
     Dosage: UNK
     Dates: start: 20040101
  4. CHANTIX [Suspect]
     Indication: SMOKING CESSATION THERAPY
     Dosage: 0.5 MG, 1X/DAY
     Route: 048
     Dates: start: 20070201
  5. CHANTIX [Suspect]
     Dosage: 0.5 MG, 2X/DAY
     Route: 048
  6. AMBIEN [Concomitant]
     Indication: INSOMNIA
     Dosage: 5 MG, UNK
     Dates: start: 20060101
  7. ADDERALL 5 [Concomitant]
     Indication: ATTENTION DEFICIT/HYPERACTIVITY DISORDER
     Dosage: 5 MG, UNK
     Dates: start: 20020101

REACTIONS (16)
  - DYSPNOEA [None]
  - ANXIETY [None]
  - SUICIDE ATTEMPT [None]
  - HALLUCINATION, OLFACTORY [None]
  - BIPOLAR DISORDER [None]
  - POST-TRAUMATIC STRESS DISORDER [None]
  - VISION BLURRED [None]
  - AMNESIA [None]
  - PANIC ATTACK [None]
  - FEMALE SEXUAL DYSFUNCTION [None]
  - CONFUSIONAL STATE [None]
  - MAJOR DEPRESSION [None]
  - HEART RATE IRREGULAR [None]
  - INTENTIONAL OVERDOSE [None]
  - CARDIAC DISORDER [None]
  - ABDOMINAL DISCOMFORT [None]
